FAERS Safety Report 5536082-3 (Version None)
Quarter: 2007Q4

REPORT INFORMATION
  Report Type: 
  Country: None (occurrence: None)
  Receive Date: 20071206
  Receipt Date: 20071126
  Transmission Date: 20080405
  Serious: Yes (Hospitalization, Other)
  Sender: FDA-Public Use
  Company Number: CA-ABBOTT-07P-028-0425992-00

PATIENT
  Sex: Male
  Weight: 135 kg

DRUGS (4)
  1. HUMIRA [Suspect]
     Indication: PSORIASIS
     Route: 058
     Dates: start: 20071121, end: 20071121
  2. ATENIDONE [Concomitant]
     Indication: HYPERTENSION
     Route: 048
     Dates: start: 20071114
  3. DICLOFENAC SR [Concomitant]
     Indication: ARTHRALGIA
     Route: 048
     Dates: start: 20071114
  4. DICLOFENAC SR [Concomitant]
     Indication: JOINT STIFFNESS

REACTIONS (1)
  - STEVENS-JOHNSON SYNDROME [None]
